FAERS Safety Report 7672780-3 (Version None)
Quarter: 2011Q3

REPORT INFORMATION
  Report Type: 
  Country: None (occurrence: None)
  Receive Date: 20110804
  Receipt Date: 20110729
  Transmission Date: 20111222
  Serious: Yes (Hospitalization)
  Sender: FDA-Public Use
  Company Number: ABR_00200_2011

PATIENT
  Sex: Male

DRUGS (2)
  1. ERYTHROCIN [Suspect]
     Indication: PRODUCT USED FOR UNKNOWN INDICATION
     Dosage: (2 G, 2 GM (1 GM, 2 IN 1 D) INTRAVENOUS (NOT OTHERWISE SPECIFIED))
     Route: 042
     Dates: start: 20110414, end: 20110416
  2. ERYTHROCIN [Suspect]
     Indication: PRODUCT USED FOR UNKNOWN INDICATION
     Dosage: (4 G, 2 GM, 2 IN 1 D) ORAL)
     Route: 048
     Dates: start: 20110416, end: 20110418

REACTIONS (1)
  - ECZEMA [None]
